FAERS Safety Report 14092647 (Version 1)
Quarter: 2017Q4

REPORT INFORMATION
  Report Type: Spontaneous
  Country: UY (occurrence: UY)
  Receive Date: 20171016
  Receipt Date: 20171016
  Transmission Date: 20180321
  Serious: Yes (Other)
  Sender: FDA-Public Use
  Company Number: UY-VIIV HEALTHCARE LIMITED-UY2017GSK158330

PATIENT
  Age: 24 Year
  Sex: Female
  Weight: 36 kg

DRUGS (2)
  1. ZIDOVUDINE + LAMIVUDINE [Suspect]
     Active Substance: LAMIVUDINE\ZIDOVUDINE
     Indication: HIV INFECTION
  2. EFAVIRENZ. [Suspect]
     Active Substance: EFAVIRENZ
     Indication: HIV INFECTION

REACTIONS (2)
  - Histiocytosis haematophagic [Unknown]
  - Treatment noncompliance [Unknown]
